FAERS Safety Report 4506405-2 (Version None)
Quarter: 2004Q4

REPORT INFORMATION
  Report Type: 
  Country: None (occurrence: None)
  Receive Date: 20041025
  Receipt Date: 20040309
  Transmission Date: 20050328
  Serious: Yes (Hospitalization)
  Sender: FDA-Public Use
  Company Number: US-JNJFOC-20040105974

PATIENT
  Age: 63 Year
  Sex: Male
  Weight: 82.5547 kg

DRUGS (12)
  1. REMICADE [Suspect]
     Indication: RHEUMATOID ARTHRITIS
     Dosage: 400 MG, 1 IN 1 TOTAL, INTRAVENOUS
     Route: 042
     Dates: start: 20030814
  2. REMICADE [Suspect]
     Indication: RHEUMATOID ARTHRITIS
     Dosage: 400 MG, INTRAVENOUS
     Route: 042
     Dates: start: 20031121, end: 20031121
  3. ARAVA [Suspect]
     Indication: RHEUMATOID ARTHRITIS
  4. PREDNISONE [Concomitant]
  5. LEVOXYL [Concomitant]
  6. MAVIK [Concomitant]
  7. PRANDIN (ALL OTHER THERAPEUTIC PRODUCTS) [Concomitant]
  8. NEURONTIN [Concomitant]
  9. FOSAMAX [Concomitant]
  10. PRILOSEC [Concomitant]
  11. GLIPIZIDE [Concomitant]
  12. HUMULIN INSULIN (INSULIN HUMAN ZINC SUSPENSION) [Concomitant]

REACTIONS (4)
  - AGRANULOCYTOSIS [None]
  - FEBRILE NEUTROPENIA [None]
  - LIVER FUNCTION TEST ABNORMAL [None]
  - PANCYTOPENIA [None]
